FAERS Safety Report 7126839-X (Version None)
Quarter: 2010Q4

REPORT INFORMATION
  Report Type: 
  Country: None (occurrence: None)
  Receive Date: 20101129
  Receipt Date: 20091119
  Transmission Date: 20110411
  Serious: No
  Sender: FDA-Public Use
  Company Number: US-PFIZER INC-2009300815

PATIENT
  Age: 29 Year
  Sex: Male
  Weight: 81.6 kg

DRUGS (1)
  1. VIAGRA [Suspect]
     Dosage: 200 MG, UNK
     Route: 048
     Dates: start: 20091119

REACTIONS (1)
  - GENITAL PAIN [None]
